FAERS Safety Report 6318316-0 (Version None)
Quarter: 2009Q3

REPORT INFORMATION
  Report Type: 
  Country: None (occurrence: None)
  Receive Date: 20090821
  Receipt Date: 20090812
  Transmission Date: 20100115
  Serious: Yes (Hospitalization, Other)
  Sender: FDA-Public Use
  Company Number: FR-PFIZER INC-2009226352

PATIENT
  Age: 77 Year

DRUGS (3)
  1. SUNITINIB MALATE [Suspect]
     Indication: PANCREATIC NEOPLASM
     Dosage: 25 MG, 1X/DAY
     Route: 048
     Dates: start: 20081029, end: 20090519
  2. AMLOR [Concomitant]
     Dosage: 5 MG, UNK
     Route: 048
  3. SANDOSTATIN [Concomitant]
     Dosage: 30 MG, MONTHLY
     Route: 030

REACTIONS (4)
  - DECREASED APPETITE [None]
  - ENCEPHALOPATHY [None]
  - GENERAL PHYSICAL HEALTH DETERIORATION [None]
  - NEUTROPENIA [None]
